FAERS Safety Report 26058158 (Version 1)
Quarter: 2025Q4

REPORT INFORMATION
  Report Type: Spontaneous
  Country: US (occurrence: US)
  Receive Date: 20251118
  Receipt Date: 20251118
  Transmission Date: 20260118
  Serious: No
  Sender: AUROBINDO
  Company Number: US-AUROBINDO-AUR-APL-2025-046254

PATIENT
  Age: 35 Year
  Weight: 100 kg

DRUGS (2)
  1. CLONAZEPAM [Suspect]
     Active Substance: CLONAZEPAM
     Indication: Post-traumatic stress disorder
     Dosage: 1 MILLIGRAM, 3 TIMES A DAY
     Route: 065
     Dates: start: 20250421
  2. GABAPENTIN [Concomitant]
     Active Substance: GABAPENTIN
     Indication: Product used for unknown indication
     Dosage: UNK
     Route: 065
     Dates: start: 20250502

REACTIONS (6)
  - Malaise [Unknown]
  - Therapeutic response changed [Unknown]
  - Headache [Unknown]
  - Insomnia [Unknown]
  - Panic attack [Unknown]
  - Product substitution issue [Unknown]
